FAERS Safety Report 7553644-2 (Version None)
Quarter: 2011Q2

REPORT INFORMATION
  Report Type: 
  Country: None (occurrence: None)
  Receive Date: 20110617
  Receipt Date: 20100908
  Transmission Date: 20111010
  Serious: No
  Sender: FDA-Public Use
  Company Number: US-MYLANLABS-2010S1016606

PATIENT
  Age: 73 Year
  Sex: Female

DRUGS (5)
  1. VYTORIN [Concomitant]
     Indication: BLOOD CHOLESTEROL
     Dosage: 10MG QD AND 20MG QD
  2. CYMBALTA [Concomitant]
     Indication: NECK PAIN
  3. AMLODIPINE [Concomitant]
     Indication: BLOOD PRESSURE INCREASED
     Dosage: 5MG QD AND 20MG QD
  4. OMEPRAZOLE [Suspect]
     Indication: GASTROOESOPHAGEAL REFLUX DISEASE
     Route: 048
     Dates: start: 20100710, end: 20100716
  5. METFORMIN HCL [Concomitant]
     Indication: DIABETES MELLITUS

REACTIONS (1)
  - APHASIA [None]
